FAERS Safety Report 9893589 (Version 2)
Quarter: 2014Q1

REPORT INFORMATION
  Report Type: Spontaneous
  Country: IT (occurrence: IT)
  Receive Date: 20140213
  Receipt Date: 20140303
  Transmission Date: 20141002
  Serious: Yes (Other)
  Sender: FDA-Public Use
  Company Number: IT-009507513-1402ITA003284

PATIENT
  Age: 64 Year
  Sex: Male
  Weight: 76 kg

DRUGS (5)
  1. REBETOL [Suspect]
     Indication: HEPATITIS C
     Dosage: 1000 MG, QD
     Route: 048
     Dates: start: 20130925, end: 20140121
  2. PEGINTRON [Suspect]
     Indication: HEPATITIS C
     Dosage: 120 MICROGRAM, QW
     Route: 058
     Dates: start: 20130925, end: 20140114
  3. VICTRELIS [Suspect]
     Indication: HEPATITIS C
     Dosage: 2400 MG, QD
     Route: 048
     Dates: start: 20131114, end: 20140121
  4. EUTIROX [Concomitant]
     Dosage: 125 MICROGRAM, QD
     Route: 048
  5. VIMPAT [Concomitant]
     Dosage: 400 MICROGRAM, QD
     Route: 048

REACTIONS (1)
  - Neutropenia [Recovered/Resolved]
